FAERS Safety Report 7773208-5 (Version None)
Quarter: 2011Q3

REPORT INFORMATION
  Report Type: 
  Country: None (occurrence: None)
  Receive Date: 20110921
  Receipt Date: 20110921
  Transmission Date: 20111222
  Serious: Yes (Hospitalization)
  Sender: FDA-Public Use
  Company Number: None

PATIENT
  Age: 52 Year
  Sex: Male

DRUGS (1)
  1. CARBAMAZEPINE [Suspect]
     Indication: BIPOLAR I DISORDER
     Dosage: 400 MG BID PO
     Route: 048
     Dates: start: 20110713, end: 20110810

REACTIONS (5)
  - DRUG ERUPTION [None]
  - RASH [None]
  - ERYTHEMA MULTIFORME [None]
  - SWOLLEN TONGUE [None]
  - EOSINOPHILIA [None]
